FAERS Safety Report 6918649-0 (Version None)
Quarter: 2010Q3

REPORT INFORMATION
  Report Type: 
  Country: None (occurrence: None)
  Receive Date: 20100811
  Receipt Date: 20100804
  Transmission Date: 20110219
  Serious: Yes (Other)
  Sender: FDA-Public Use
  Company Number: US-PFIZER INC-2010080748

PATIENT
  Sex: Male
  Weight: 88.9 kg

DRUGS (4)
  1. GEODON [Suspect]
     Indication: DEPRESSION
     Dosage: 80 MG, 2X/DAY
     Route: 048
     Dates: start: 20100601, end: 20100601
  2. GEODON [Suspect]
     Indication: BIPOLAR DISORDER
  3. GEODON [Suspect]
     Indication: DELUSION
  4. SEROQUEL [Concomitant]
     Dosage: UNK

REACTIONS (5)
  - DELUSION [None]
  - HALLUCINATION [None]
  - PSYCHOTIC DISORDER [None]
  - SCHIZOPHRENIA [None]
  - TREMOR [None]
